FAERS Safety Report 19707491 (Version 3)
Quarter: 2021Q3

REPORT INFORMATION
  Report Type: Spontaneous
  Country: GB (occurrence: GB)
  Receive Date: 20210817
  Receipt Date: 20210914
  Transmission Date: 20211014
  Serious: Yes (Other)
  Sender: FDA-Public Use
  Company Number: GB-AMGEN-GBRSP2021099754

PATIENT
  Age: 55 Year
  Sex: Male

DRUGS (6)
  1. APREMILAST [Suspect]
     Active Substance: APREMILAST
     Indication: PSORIATIC ARTHROPATHY
     Dosage: 60 MILLIGRAM, QD
     Route: 048
     Dates: start: 20201111
  2. METHOTREXATE. [Concomitant]
     Active Substance: METHOTREXATE
     Indication: ILL-DEFINED DISORDER
     Dosage: 10 MILLIGRAM, QWK
     Route: 065
  3. APREMILAST [Suspect]
     Active Substance: APREMILAST
     Dosage: 30 MILLIGRAM, QD
     Route: 048
     Dates: end: 20210423
  4. OMEPRAZOLE SODIUM [Concomitant]
     Active Substance: OMEPRAZOLE SODIUM
     Indication: ILL-DEFINED DISORDER
     Dosage: UNK
  5. NIZATIDINE. [Concomitant]
     Active Substance: NIZATIDINE
     Indication: ILL-DEFINED DISORDER
     Dosage: UNK
     Route: 065
  6. VOLTAREN [Suspect]
     Active Substance: DICLOFENAC SODIUM
     Indication: PSORIATIC ARTHROPATHY
     Dosage: 150 MILLIGRAM, QD
     Route: 048
     Dates: start: 20201210, end: 20210423

REACTIONS (9)
  - Abdominal pain upper [Recovering/Resolving]
  - Dyspepsia [Unknown]
  - Diarrhoea [Unknown]
  - Intestinal metaplasia [Unknown]
  - Off label use [Unknown]
  - Gastritis [Unknown]
  - Barrett^s oesophagus [Unknown]
  - Hiatus hernia [Unknown]
  - Haemoptysis [Unknown]

NARRATIVE: CASE EVENT DATE: 20201111
